FAERS Safety Report 8352538-2 (Version None)
Quarter: 2012Q2

REPORT INFORMATION
  Report Type: 
  Country: None (occurrence: None)
  Receive Date: 20120511
  Receipt Date: 20120508
  Transmission Date: 20120825
  Serious: Yes (Hospitalization, Other)
  Sender: FDA-Public Use
  Company Number: PHEH2005US10700

PATIENT
  Sex: Male
  Weight: 103.85 kg

DRUGS (17)
  1. CALCIUM CARBONATE [Concomitant]
  2. NEURONTIN [Concomitant]
     Dosage: 1800 MG
  3. ASPIRIN [Concomitant]
  4. VANCOMYCIN [Concomitant]
  5. ADRIAMYCIN PFS [Concomitant]
     Dosage: 80 MG
  6. PAROXETINE [Concomitant]
     Dosage: 20 MG
  7. VINCRISTINE [Concomitant]
     Dosage: 2 MG
  8. ZOMETA [Suspect]
     Route: 042
  9. COUMADIN [Suspect]
  10. ALLOPURINOL [Concomitant]
     Indication: RENAL FAILURE
     Dosage: 300 MG
  11. TAGAMET [Concomitant]
  12. LODINE [Concomitant]
  13. THALIDOMIDE [Concomitant]
     Dosage: 200 MG
  14. DOXORUBICIN HCL [Concomitant]
  15. DEXAMETHASONE [Concomitant]
     Dosage: 4 MG, QMO
  16. AREDIA [Suspect]
     Dosage: 90 MG
     Dates: start: 19971204
  17. ALPRAZOLAM [Concomitant]
     Indication: DEPRESSION

REACTIONS (63)
  - ALPHA HAEMOLYTIC STREPTOCOCCAL INFECTION [None]
  - CARDIOMEGALY [None]
  - SEPSIS [None]
  - DIABETES MELLITUS [None]
  - NEPHROSCLEROSIS [None]
  - BONE DISORDER [None]
  - DYSPNOEA [None]
  - DEPRESSION [None]
  - AORTIC BRUIT [None]
  - EMPHYSEMA [None]
  - PHOSPHORUS METABOLISM DISORDER [None]
  - MONONEURITIS [None]
  - CONSTIPATION [None]
  - ATELECTASIS [None]
  - CHEST PAIN [None]
  - LEUKOCYTOSIS [None]
  - CARDIAC FAILURE CONGESTIVE [None]
  - SLEEP APNOEA SYNDROME [None]
  - HYPOACUSIS [None]
  - COAGULOPATHY [None]
  - VENTRICULAR TACHYCARDIA [None]
  - FALL [None]
  - PERIPHERAL VASCULAR DISORDER [None]
  - OSTEONECROSIS OF JAW [None]
  - CORONARY ARTERY DISEASE [None]
  - HYPERPARATHYROIDISM SECONDARY [None]
  - CARDIOMYOPATHY [None]
  - VENOUS OCCLUSION [None]
  - PULMONARY OEDEMA [None]
  - PNEUMONIA [None]
  - LEFT VENTRICULAR DYSFUNCTION [None]
  - ARRHYTHMIA [None]
  - SCOLIOSIS [None]
  - VENOUS THROMBOSIS [None]
  - OSTEOMYELITIS [None]
  - MASTICATION DISORDER [None]
  - HYPERTENSION [None]
  - NICOTINE DEPENDENCE [None]
  - BACTERAEMIA [None]
  - EXTRASYSTOLES [None]
  - EXCESSIVE GRANULATION TISSUE [None]
  - OSTEOARTHRITIS [None]
  - ANAEMIA [None]
  - HYPERPHOSPHATAEMIA [None]
  - HYPOALBUMINAEMIA [None]
  - NEPHROGENIC ANAEMIA [None]
  - BRADYCARDIA [None]
  - BUNDLE BRANCH BLOCK LEFT [None]
  - PARAESTHESIA ORAL [None]
  - HYPOAESTHESIA ORAL [None]
  - NEUROPATHY PERIPHERAL [None]
  - STAPHYLOCOCCAL INFECTION [None]
  - RENAL FAILURE CHRONIC [None]
  - HYPERTENSIVE NEPHROPATHY [None]
  - CHRONIC OBSTRUCTIVE PULMONARY DISEASE [None]
  - GINGIVAL DISORDER [None]
  - PLEURAL EFFUSION [None]
  - HYPONATRAEMIA [None]
  - COMPRESSION FRACTURE [None]
  - GOUT [None]
  - ORAL CAVITY FISTULA [None]
  - PNEUMONITIS [None]
  - PLASMA PROTEIN METABOLISM DISORDER [None]
